FAERS Safety Report 21400411 (Version 1)
Quarter: 2022Q4

REPORT INFORMATION
  Report Type: Spontaneous
  Country: CA (occurrence: CA)
  Receive Date: 20221003
  Receipt Date: 20221003
  Transmission Date: 20230113
  Serious: Yes (Other)
  Sender: FDA-Public Use
  Company Number: CA-AUROBINDO-AUR-APL-2022-039890

PATIENT
  Age: 37 Year
  Sex: Female
  Weight: 58 kg

DRUGS (8)
  1. VENLAFAXINE [Suspect]
     Active Substance: VENLAFAXINE HYDROCHLORIDE
     Indication: Product used for unknown indication
     Dosage: UNK
     Route: 065
  2. CLONAZEPAM [Suspect]
     Active Substance: CLONAZEPAM
     Indication: Product used for unknown indication
     Dosage: UNK
     Route: 065
  3. DIPHTHERIA AND TETANUS TOXOIDS AND PERTUSSIS VACCINE ADSORBED NOS [Suspect]
     Active Substance: DIPHTHERIA AND TETANUS TOXOIDS AND PERTUSSIS VACCINE
     Indication: Prophylaxis
     Dosage: UNK
     Route: 065
  4. KEFLEX [Suspect]
     Active Substance: CEPHALEXIN
     Indication: Prophylaxis
  5. PFIZER-BIONTECH COVID-19 VACCINE [Suspect]
     Active Substance: TOZINAMERAN
     Indication: COVID-19 prophylaxis
  6. PRIORIX [Suspect]
     Active Substance: MEASLES-MUMPS-RUBELLA VIRUS VACCINE
     Indication: Product used for unknown indication
     Dosage: UNK
     Route: 065
  7. VALTREX [Suspect]
     Active Substance: VALACYCLOVIR HYDROCHLORIDE
     Indication: Prophylaxis
     Dosage: UNK
     Route: 065
  8. ZOLOFT [Suspect]
     Active Substance: SERTRALINE HYDROCHLORIDE
     Indication: Product used for unknown indication
     Dosage: 200 MILLIGRAM
     Route: 065

REACTIONS (12)
  - Suicide attempt [Recovered/Resolved]
  - COVID-19 [Recovered/Resolved]
  - Balance disorder [Recovered/Resolved]
  - Cough [Recovered/Resolved]
  - Decreased appetite [Recovered/Resolved]
  - Depression [Recovered/Resolved]
  - Illness [Recovered/Resolved]
  - Inner ear disorder [Recovered/Resolved]
  - Pyrexia [Recovered/Resolved]
  - Scar [Recovered/Resolved]
  - Vertigo [Recovered/Resolved]
  - Tinnitus [Recovered/Resolved]
